FAERS Safety Report 8558197-8 (Version None)
Quarter: 2012Q3

REPORT INFORMATION
  Report Type: 
  Country: None (occurrence: None)
  Receive Date: 20120801
  Receipt Date: 20120724
  Transmission Date: 20120928
  Serious: Yes (Hospitalization, Other)
  Sender: FDA-Public Use
  Company Number: US-009507513-2009SP029107

PATIENT

DRUGS (3)
  1. AMITRIPTYLINE HCL [Concomitant]
     Indication: MIGRAINE
     Dosage: 25 MG, QD
  2. EFFEXOR [Concomitant]
     Indication: DEPRESSION
     Dosage: 225 MG, QD
  3. NUVARING [Suspect]
     Indication: CONTRACEPTION
     Dates: start: 20060701, end: 20071001

REACTIONS (15)
  - BRONCHIAL HYPERREACTIVITY [None]
  - PANIC ATTACK [None]
  - FATIGUE [None]
  - VITAMIN D DEFICIENCY [None]
  - PULMONARY EMBOLISM [None]
  - BRONCHITIS [None]
  - INCREASED TENDENCY TO BRUISE [None]
  - MOOD SWINGS [None]
  - MENORRHAGIA [None]
  - CHLAMYDIAL INFECTION [None]
  - MIGRAINE [None]
  - MUSCLE SPASMS [None]
  - RASH [None]
  - THROMBOSIS [None]
  - BIPOLAR DISORDER [None]
